FAERS Safety Report 10029315 (Version 3)
Quarter: 2014Q1

REPORT INFORMATION
  Report Type: Report from Study
  Country: FR (occurrence: FR)
  Receive Date: 20140321
  Receipt Date: 20140326
  Transmission Date: 20141002
  Serious: Yes (Hospitalization, Other)
  Sender: FDA-Public Use
  Company Number: PHHY2014FR011060

PATIENT
  Age: 29 Year
  Sex: Female

DRUGS (1)
  1. EXTAVIA [Suspect]
     Indication: MULTIPLE SCLEROSIS
     Dates: start: 20110415, end: 20120830

REACTIONS (3)
  - Multiple sclerosis relapse [Unknown]
  - Optic neuritis [Recovered/Resolved]
  - Drug ineffective [Unknown]
